FAERS Safety Report 7287183-3 (Version None)
Quarter: 2011Q1

REPORT INFORMATION
  Report Type: 
  Country: None (occurrence: None)
  Receive Date: 20110211
  Receipt Date: 20110128
  Transmission Date: 20110831
  Serious: Yes (Death, Hospitalization, Other)
  Sender: FDA-Public Use
  Company Number: JP-ROCHE-706913

PATIENT
  Sex: Male

DRUGS (15)
  1. ALIMTA [Suspect]
     Route: 041
     Dates: start: 20100511, end: 20100511
  2. CARBOPLATIN [Suspect]
     Indication: LUNG ADENOCARCINOMA
     Route: 041
     Dates: start: 20100311, end: 20100311
  3. OXYCONTIN [Concomitant]
     Route: 048
     Dates: end: 20100404
  4. AVASTIN [Suspect]
     Dosage: DOSE FORM: INJECTION, ROUTE: INTRAVENOUS DRIP
     Route: 041
     Dates: start: 20100406, end: 20100406
  5. AVASTIN [Suspect]
     Route: 041
     Dates: start: 20100511, end: 20100511
  6. ALLEGRA [Concomitant]
     Route: 048
  7. ENSURE LIQUID [Concomitant]
     Dosage: DOSE FORM: PERORAL LIQUID PREPARATION.
     Route: 048
  8. AVASTIN [Suspect]
     Indication: LUNG ADENOCARCINOMA
     Route: 041
     Dates: start: 20100311, end: 20100511
  9. OXYCONTIN [Concomitant]
     Route: 048
     Dates: start: 20100405
  10. PANVITAN [Concomitant]
     Dosage: DOSE FORM: POWDERED MEDICINE
     Route: 048
  11. CARBOPLATIN [Suspect]
     Route: 041
     Dates: start: 20100406, end: 20100406
  12. ALIMTA [Suspect]
     Indication: LUNG ADENOCARCINOMA
     Route: 041
     Dates: start: 20100311, end: 20100311
  13. MAGLAX [Concomitant]
     Route: 048
  14. CARBOPLATIN [Suspect]
     Route: 041
     Dates: start: 20100511, end: 20100511
  15. ALIMTA [Suspect]
     Route: 041
     Dates: start: 20100406, end: 20100406

REACTIONS (7)
  - DEHYDRATION [None]
  - VOMITING [None]
  - PLATELET COUNT DECREASED [None]
  - NAUSEA [None]
  - HAEMATEMESIS [None]
  - DECREASED APPETITE [None]
  - ANAEMIA [None]
